FAERS Safety Report 17075391 (Version 1)
Quarter: 2019Q4

REPORT INFORMATION
  Report Type: Spontaneous
  Country: US (occurrence: US)
  Receive Date: 20191125
  Receipt Date: 20191125
  Transmission Date: 20200122
  Serious: Yes (Life-Threatening, Other)
  Sender: FDA-Public Use
  Company Number: None

PATIENT
  Age: 72 Year
  Sex: Female
  Weight: 101 kg

DRUGS (15)
  1. ANDEXXA [Suspect]
     Active Substance: ANDEXANET ALFA
     Indication: PROCOAGULANT THERAPY
     Dates: start: 20190727, end: 20190727
  2. IOHEXOL [Concomitant]
     Active Substance: IOHEXOL
     Dates: start: 20190727, end: 20190727
  3. METOPROLOL. [Concomitant]
     Active Substance: METOPROLOL
     Dates: start: 20190727, end: 20190727
  4. NOREPINEPHRINE. [Concomitant]
     Active Substance: NOREPINEPHRINE
     Dates: start: 20190727, end: 20190727
  5. PHENYLEPHRINE [Concomitant]
     Active Substance: PHENYLEPHRINE HYDROCHLORIDE
     Dates: start: 20190727, end: 20190729
  6. SODIUM CHLORIDE FLUSH [Concomitant]
     Active Substance: SODIUM CHLORIDE
     Dates: start: 20190727, end: 20190807
  7. PROPOFOL. [Concomitant]
     Active Substance: PROPOFOL
     Dates: start: 20190727, end: 20190727
  8. CEFAZOLIN [Concomitant]
     Active Substance: CEFAZOLIN
     Dates: start: 20190727, end: 20190727
  9. HEPARIN LOCK FLUSH [Concomitant]
     Active Substance: HEPARIN SODIUM
     Dates: start: 20190727, end: 20190807
  10. FENTANYL. [Concomitant]
     Active Substance: FENTANYL
     Dates: start: 20190727, end: 20190806
  11. LEVETIRACETAM. [Concomitant]
     Active Substance: LEVETIRACETAM
     Dates: start: 20190727, end: 20190729
  12. ANDEXXA [Suspect]
     Active Substance: ANDEXANET ALFA
     Indication: INTRAVENTRICULAR HAEMORRHAGE
     Dates: start: 20190727, end: 20190727
  13. LIDOCAINE. [Concomitant]
     Active Substance: LIDOCAINE
     Dates: start: 20190727, end: 20190727
  14. DESMOPRESSIN [Concomitant]
     Active Substance: DESMOPRESSIN
     Dates: start: 20190727, end: 20190727
  15. DEXMEDETOMIDINE. [Concomitant]
     Active Substance: DEXMEDETOMIDINE
     Dates: start: 20190727, end: 20190806

REACTIONS (1)
  - Cerebral infarction [None]

NARRATIVE: CASE EVENT DATE: 20190801
